FAERS Safety Report 20951069 (Version 1)
Quarter: 2022Q2

REPORT INFORMATION
  Report Type: Other
  Country: None (occurrence: TR)
  Receive Date: 20220613
  Receipt Date: 20220613
  Transmission Date: 20220721
  Serious: Yes (Other)
  Sender: FDA-Public Use
  Company Number: TR-MSN LABORATORIES PRIVATE LIMITED-2129762

PATIENT
  Age: 45 Year
  Sex: Male

DRUGS (2)
  1. DECITABINE [Suspect]
     Active Substance: DECITABINE
     Indication: Acute myeloid leukaemia
     Route: 050
     Dates: start: 202001
  2. VENETOCLAX [Suspect]
     Active Substance: VENETOCLAX
     Route: 050
     Dates: start: 202001

REACTIONS (1)
  - Cytopenia [Unknown]
